FAERS Safety Report 19708160 (Version 1)
Quarter: 2021Q3

REPORT INFORMATION
  Report Type: Spontaneous
  Country: ES (occurrence: ES)
  Receive Date: 20210817
  Receipt Date: 20210817
  Transmission Date: 20211014
  Serious: Yes (Hospitalization, Other)
  Sender: FDA-Public Use
  Company Number: ES-ACCORD-232631

PATIENT
  Age: 72 Year
  Sex: Male

DRUGS (7)
  1. HYDROXYCHLOROQUINE [Concomitant]
     Active Substance: HYDROXYCHLOROQUINE
     Indication: COVID-19
     Dosage: INITIAL LOADING DOSE, 200MG, EVERY 12H
     Route: 048
  2. LOPINAVIR/RITONAVIR [Interacting]
     Active Substance: LOPINAVIR\RITONAVIR
     Indication: COVID-19
     Dosage: 100 MG, EVERY 12H
     Route: 048
  3. METHYLPREDNISOLONE. [Concomitant]
     Active Substance: METHYLPREDNISOLONE
     Indication: COVID-19
     Dosage: SINGLE INITIAL DOSE WITH SUBSEQUENT DOWN?TITRATION?REGIMEN 80MG, 40MG
     Route: 042
  4. EVEROLIMUS. [Concomitant]
     Active Substance: EVEROLIMUS
     Indication: IMMUNOSUPPRESSANT DRUG THERAPY
     Dates: start: 2012
  5. TACROLIMUS. [Suspect]
     Active Substance: TACROLIMUS
     Indication: IMMUNOSUPPRESSANT DRUG THERAPY
     Dates: start: 2012
  6. AZITHROMYCIN ANHYDROUS. [Concomitant]
     Active Substance: AZITHROMYCIN ANHYDROUS
     Indication: COVID-19
     Dosage: 250MG, EVERY 24H
     Route: 048
  7. CEFTAZIDIME/CEFTAZIDIME PENTAHYDRATE [Concomitant]
     Active Substance: CEFTAZIDIME
     Indication: COVID-19
     Dosage: EVERY 12H
     Route: 042

REACTIONS (7)
  - Dyspnoea [Recovered/Resolved]
  - Drug interaction [Unknown]
  - Off label use [Unknown]
  - Lymphopenia [Recovering/Resolving]
  - Micturition disorder [Recovering/Resolving]
  - Drug level increased [Recovering/Resolving]
  - Leukocytosis [Recovering/Resolving]
